FAERS Safety Report 8159599-4 (Version None)
Quarter: 2012Q1

REPORT INFORMATION
  Report Type: 
  Country: None (occurrence: None)
  Receive Date: 20120223
  Receipt Date: 20120208
  Transmission Date: 20120608
  Serious: Yes (Hospitalization)
  Sender: FDA-Public Use
  Company Number: CH-ROCHE-1040529

PATIENT
  Age: 87 Year
  Sex: Female

DRUGS (9)
  1. TORSEMIDE [Suspect]
     Indication: PRODUCT USED FOR UNKNOWN INDICATION
     Route: 048
     Dates: start: 20111201
  2. ATROVENT [Concomitant]
  3. TORSEMIDE [Suspect]
     Route: 048
     Dates: end: 20111224
  4. LANSOPRAZOLE [Concomitant]
     Route: 048
  5. PULMICORT-100 [Concomitant]
  6. METOLAZONE [Suspect]
     Indication: CARDIAC FAILURE
     Route: 048
     Dates: start: 20111201, end: 20111224
  7. ACTONEL [Concomitant]
  8. VENTOLIN [Concomitant]
  9. TENORMIN [Concomitant]

REACTIONS (2)
  - HYPONATRAEMIA [None]
  - HYPOKALAEMIA [None]
